FAERS Safety Report 8156962-2 (Version None)
Quarter: 2012Q1

REPORT INFORMATION
  Report Type: 
  Country: None (occurrence: None)
  Receive Date: 20120222
  Receipt Date: 20120215
  Transmission Date: 20120608
  Serious: Yes (Other)
  Sender: FDA-Public Use
  Company Number: US-ENDO PHARMACEUTICALS INC.-SPLN20120007

PATIENT
  Sex: Female
  Weight: 27.24 kg

DRUGS (2)
  1. SUPPRELIN LA [Suspect]
     Indication: PRECOCIOUS PUBERTY
     Route: 058
     Dates: start: 20120109
  2. SUPPRELIN LA [Suspect]
     Route: 058
     Dates: start: 20080101

REACTIONS (2)
  - PROCEDURAL COMPLICATION [None]
  - DEVICE BREAKAGE [None]
